FAERS Safety Report 7341493-X (Version None)
Quarter: 2011Q1

REPORT INFORMATION
  Report Type: 
  Country: None (occurrence: None)
  Receive Date: 20110309
  Receipt Date: 20110304
  Transmission Date: 20110831
  Serious: Yes (Death, Hospitalization)
  Sender: FDA-Public Use
  Company Number: GB-ROCHE-763815

PATIENT
  Sex: Male
  Weight: 71 kg

DRUGS (8)
  1. DEXAMETHASONE [Concomitant]
     Route: 048
     Dates: start: 20110217, end: 20110217
  2. METOCLOPRAMIDE HCL [Concomitant]
     Route: 048
     Dates: start: 20110217, end: 20110217
  3. SODIUM CHLORIDE [Concomitant]
     Route: 042
     Dates: start: 20110217, end: 20110217
  4. CAPECITABINE [Suspect]
     Route: 042
     Dates: start: 20110217
  5. CISPLATIN [Suspect]
     Route: 065
     Dates: start: 20110217
  6. EPIRUBICIN [Suspect]
     Route: 065
     Dates: start: 20110217
  7. ONDANSETRON [Concomitant]
     Route: 042
     Dates: start: 20110217, end: 20110217
  8. DEXAMETHASONE [Concomitant]
     Route: 042
     Dates: start: 20110217, end: 20110217

REACTIONS (2)
  - CEREBROVASCULAR ACCIDENT [None]
  - RED BLOOD CELL COUNT DECREASED [None]
